FAERS Safety Report 8401022-6 (Version None)
Quarter: 2012Q2

REPORT INFORMATION
  Report Type: 
  Country: None (occurrence: None)
  Receive Date: 20120601
  Receipt Date: 20120530
  Transmission Date: 20120825
  Serious: No
  Sender: FDA-Public Use
  Company Number: US-BIOGENIDEC-2012BI019122

PATIENT
  Age: 39 Year
  Sex: Female

DRUGS (3)
  1. AVONEX [Suspect]
     Indication: MULTIPLE SCLEROSIS
     Route: 030
     Dates: start: 19960101, end: 20030101
  2. TYLENOL W/ CODEINE NO. 3 [Concomitant]
     Indication: PREMEDICATION
     Dates: start: 19960101
  3. AVONEX [Suspect]
     Route: 030
     Dates: end: 20120120

REACTIONS (2)
  - POLLAKIURIA [None]
  - PYREXIA [None]
